FAERS Safety Report 14923122 (Version 2)
Quarter: 2018Q2

REPORT INFORMATION
  Report Type: Report from Study
  Country: BR (occurrence: BR)
  Receive Date: 20180522
  Receipt Date: 20180606
  Transmission Date: 20180711
  Serious: Yes (Other)
  Sender: FDA-Public Use
  Company Number: PHHY2016BR135633

PATIENT
  Sex: Female
  Weight: 58 kg

DRUGS (2)
  1. DEPURA [Concomitant]
     Active Substance: CHOLECALCIFEROL
     Indication: BONE DISORDER
     Route: 065
  2. ACLASTA [Suspect]
     Active Substance: ZOLEDRONIC ACID
     Indication: OSTEOPOROSIS
     Dosage: 1 DF (5 MG/100 ML), Q12MO
     Route: 042
     Dates: start: 20160710, end: 20160710

REACTIONS (11)
  - Spinal pain [Unknown]
  - Pyrexia [Unknown]
  - Pain [Unknown]
  - Gait inability [Unknown]
  - Mobility decreased [Unknown]
  - Vomiting [Recovered/Resolved]
  - Malaise [Recovering/Resolving]
  - Fall [Unknown]
  - Syncope [Unknown]
  - Bone pain [Unknown]
  - Oropharyngeal discomfort [Unknown]
